FAERS Safety Report 23774175 (Version 6)
Quarter: 2025Q3

REPORT INFORMATION
  Report Type: Spontaneous
  Country: JP (occurrence: JP)
  Receive Date: 20240423
  Receipt Date: 20250809
  Transmission Date: 20251021
  Serious: Yes (Hospitalization)
  Sender: ALEXION PHARMACEUTICALS
  Company Number: 2024A093886

PATIENT
  Age: 44 Year
  Sex: Female
  Weight: 51 kg

DRUGS (13)
  1. TEZSPIRE [Suspect]
     Active Substance: TEZEPELUMAB-EKKO
     Indication: Asthma
  2. TEZSPIRE [Suspect]
     Active Substance: TEZEPELUMAB-EKKO
  3. TEZSPIRE [Suspect]
     Active Substance: TEZEPELUMAB-EKKO
     Indication: Asthma
     Dosage: 210 MILLIGRAM, Q4W
     Dates: start: 20240312
  4. BUDESONIDE [Concomitant]
     Active Substance: BUDESONIDE
     Indication: Asthma-chronic obstructive pulmonary disease overlap syndrome
     Dosage: 2 DOSAGE FORM, BID
  5. MONTELUKAST [Concomitant]
     Active Substance: MONTELUKAST
     Indication: Asthma
     Dosage: 10 MILLIGRAM, QD
  6. CARBOCYSTEINE [Concomitant]
     Active Substance: CARBOCYSTEINE
     Indication: Asthma
     Dosage: 500 MILLIGRAM, TID
  7. METFORMIN HYDROCHLORIDE [Concomitant]
     Active Substance: METFORMIN HYDROCHLORIDE
     Indication: Type 2 diabetes mellitus
     Dosage: 500 MILLIGRAM, TID
  8. FENOFIBRATE [Concomitant]
     Active Substance: FENOFIBRATE
     Indication: Dyslipidaemia
     Dosage: 80 MILLIGRAM, QD
  9. PITAVASTATIN CALCIUM [Concomitant]
     Active Substance: PITAVASTATIN CALCIUM
     Indication: Dyslipidaemia
     Dosage: 1 MILLIGRAM, QD
  10. ANAGLIPTIN [Concomitant]
     Active Substance: ANAGLIPTIN
     Indication: Type 2 diabetes mellitus
     Dosage: 100 MILLIGRAM, QD
  11. BEPOTASTINE BESYLATE [Concomitant]
     Active Substance: BEPOTASTINE BESYLATE
     Indication: Cutaneous symptom
     Dosage: 10 MILLIGRAM, BID
  12. RUPAFIN [Concomitant]
     Active Substance: RUPATADINE FUMARATE
     Indication: Cutaneous symptom
     Dosage: 10 MILLIGRAM, QD
  13. NUCALA [Concomitant]
     Active Substance: MEPOLIZUMAB
     Indication: Asthma
     Route: 065

REACTIONS (3)
  - Asthma [Recovering/Resolving]
  - Influenza [Unknown]
  - Drug ineffective [Unknown]

NARRATIVE: CASE EVENT DATE: 20230101
